FAERS Safety Report 5598322-4 (Version None)
Quarter: 2008Q1

REPORT INFORMATION
  Report Type: 
  Country: None (occurrence: None)
  Receive Date: 20080122
  Receipt Date: 20080111
  Transmission Date: 20080703
  Serious: Yes (Hospitalization, Disabling)
  Sender: FDA-Public Use
  Company Number: B0493714A

PATIENT
  Age: 30 Year
  Sex: Female
  Weight: 47 kg

DRUGS (4)
  1. PAXIL [Suspect]
     Indication: MAJOR DEPRESSION
     Route: 048
     Dates: start: 20051101
  2. FLUVOXAMINE MALEATE [Suspect]
     Indication: MAJOR DEPRESSION
     Route: 048
  3. VALPROATE SODIUM [Concomitant]
  4. ALCOHOL [Concomitant]

REACTIONS (7)
  - ABNORMAL BEHAVIOUR [None]
  - ACTIVATION SYNDROME [None]
  - AGGRESSION [None]
  - IMPULSIVE BEHAVIOUR [None]
  - LOGORRHOEA [None]
  - MANIA [None]
  - PSYCHOMOTOR HYPERACTIVITY [None]
